FAERS Safety Report 5416908-4 (Version None)
Quarter: 2007Q3

REPORT INFORMATION
  Report Type: 
  Country: None (occurrence: None)
  Receive Date: 20070816
  Receipt Date: 20070804
  Transmission Date: 20080115
  Serious: Yes (Other)
  Sender: FDA-Public Use
  Company Number: GB-PFIZER INC-2007061360

PATIENT
  Age: 60 Year
  Sex: Female

DRUGS (5)
  1. LYRICA [Suspect]
     Indication: ANXIETY
     Route: 048
  2. ZOPICLONE [Interacting]
     Indication: SLEEP DISORDER
  3. LORAZEPAM [Concomitant]
  4. NITRAZEPAM [Concomitant]
  5. DIAZEPAM [Concomitant]

REACTIONS (13)
  - ANXIETY [None]
  - CONSTIPATION [None]
  - DISTURBANCE IN ATTENTION [None]
  - DRUG INTERACTION [None]
  - DRUG INTOLERANCE [None]
  - DRY MOUTH [None]
  - FEAR [None]
  - FEELING ABNORMAL [None]
  - HEADACHE [None]
  - HYPERHIDROSIS [None]
  - PANIC DISORDER [None]
  - SLEEP DISORDER [None]
  - SOMNOLENCE [None]
